FAERS Safety Report 8847994 (Version 1)
Quarter: 2012Q4

REPORT INFORMATION
  Report Type: 
  Country: US (occurrence: US)
  Receive Date: 20121018
  Receipt Date: 20121018
  Transmission Date: 20130627
  Serious: Yes (Hospitalization)
  Sender: FDA-Public Use
  Company Number: US-ASTRAZENECA-2012SE77549

PATIENT
  Age: 75 Year
  Sex: Female
  Weight: 76.2 kg

DRUGS (6)
  1. SYMBICORT [Suspect]
     Dosage: 160/4.5 MCG WITH UNKNOWN FREQUENCY
     Route: 055
     Dates: start: 2011
  2. FUROSEMIDE [Concomitant]
  3. CARVEDILOL [Concomitant]
  4. WARFARIN [Concomitant]
  5. POTASSIUM [Concomitant]
  6. IRON [Concomitant]

REACTIONS (1)
  - Pneumonia [Recovered/Resolved]
